FAERS Safety Report 4937054-X (Version None)
Quarter: 2006Q1

REPORT INFORMATION
  Report Type: 
  Country: None (occurrence: None)
  Receive Date: 20060309
  Receipt Date: 20051003
  Transmission Date: 20060701
  Serious: Yes (Death)
  Sender: FDA-Public Use
  Company Number: US-MERCK-0510USA02606

PATIENT
  Age: 45 Year
  Sex: Female
  Weight: 57 kg

DRUGS (2)
  1. VIOXX [Suspect]
     Indication: RHEUMATOID ARTHRITIS
     Route: 048
     Dates: start: 20010501, end: 20030928
  2. TYLENOL (CAPLET) [Concomitant]
     Route: 065

REACTIONS (3)
  - ARTHROPATHY [None]
  - CARDIOVASCULAR DISORDER [None]
  - DEATH [None]
